FAERS Safety Report 6712493-5 (Version None)
Quarter: 2010Q2

REPORT INFORMATION
  Report Type: 
  Country: None (occurrence: None)
  Receive Date: 20100505
  Receipt Date: 20100505
  Transmission Date: 20101027
  Serious: Yes (Other)
  Sender: FDA-Public Use
  Company Number: None

PATIENT
  Sex: Female

DRUGS (1)
  1. GLYBURIDE AND METFORMIN HYDROCHLORIDE [Suspect]
     Indication: DIABETES MELLITUS
     Dosage: 5/500 PO
     Route: 048

REACTIONS (2)
  - DRUG ADMINISTRATION ERROR [None]
  - UNRESPONSIVE TO STIMULI [None]
